FAERS Safety Report 7115985-2 (Version None)
Quarter: 2010Q4

REPORT INFORMATION
  Report Type: 
  Country: None (occurrence: None)
  Receive Date: 20101122
  Receipt Date: 20101117
  Transmission Date: 20110411
  Serious: Yes (Other)
  Sender: FDA-Public Use
  Company Number: CA-SHIRE-SPV1-2010-01995

PATIENT
  Sex: Female

DRUGS (3)
  1. VYVANSE [Suspect]
     Indication: ATTENTION DEFICIT/HYPERACTIVITY DISORDER
     Dosage: 40 MG, 1X/DAY:QD
  2. LIDOCAINE [Concomitant]
     Indication: ANAESTHETIC PREMEDICATION
     Dosage: UNK
     Dates: start: 20101116, end: 20101116
  3. CIPRALEX [Concomitant]
     Indication: DEPRESSION
     Dosage: UNK

REACTIONS (3)
  - DYSPNOEA [None]
  - HYPERSENSITIVITY [None]
  - SWELLING [None]
